FAERS Safety Report 21407111 (Version 2)
Quarter: 2022Q4

REPORT INFORMATION
  Report Type: Spontaneous
  Country: DK (occurrence: None)
  Receive Date: 20221004
  Receipt Date: 20221011
  Transmission Date: 20230112
  Serious: Yes (Hospitalization, Disabling)
  Sender: FDA-Public Use
  Company Number: 2022A329094

PATIENT
  Age: 45 Year
  Sex: Female

DRUGS (2)
  1. TICAGRELOR [Suspect]
     Active Substance: TICAGRELOR
     Indication: Myocardial infarction
     Dosage: DOSAGE: UNKNOWN. STRENGTH: UNKNOWN
     Route: 048
     Dates: start: 20201020
  2. ASPIRIN\MAGNESIUM HYDROXIDE [Suspect]
     Active Substance: ASPIRIN\MAGNESIUM HYDROXIDE
     Indication: Myocardial infarction
     Dosage: DOSAGE: UNKNOWN. STRENGTH: UNKNOWN
     Route: 048
     Dates: start: 20201020

REACTIONS (6)
  - Neurologic neglect syndrome [Unknown]
  - Depressed level of consciousness [Not Recovered/Not Resolved]
  - Seizure [Unknown]
  - Hemiplegia [Not Recovered/Not Resolved]
  - Brain injury [Not Recovered/Not Resolved]
  - Cerebral haemorrhage [Unknown]

NARRATIVE: CASE EVENT DATE: 20200101
